FAERS Safety Report 16012264 (Version 3)
Quarter: 2019Q3

REPORT INFORMATION
  Report Type: Report from Study
  Country: US (occurrence: US)
  Receive Date: 20190227
  Receipt Date: 20190717
  Transmission Date: 20191004
  Serious: No
  Sender: FDA-Public Use
  Company Number: US-MYLANLABS-2019M1013692

PATIENT
  Sex: Female
  Weight: 76.65 kg

DRUGS (3)
  1. MONTELUKAST [Concomitant]
     Active Substance: MONTELUKAST SODIUM
     Indication: HYPERSENSITIVITY
     Dosage: 10 MILLIGRAM, QD
  2. GLATIRAMER ACETATE INJECTION [Suspect]
     Active Substance: GLATIRAMER ACETATE
     Indication: RELAPSING-REMITTING MULTIPLE SCLEROSIS
     Dosage: 40 MILLIGRAM, 3XW
     Route: 058
  3. TIZANIDINE                         /00740702/ [Concomitant]
     Active Substance: TIZANIDINE HYDROCHLORIDE
     Indication: MUSCLE RELAXANT THERAPY
     Dosage: 2 MILLIGRAM

REACTIONS (12)
  - Oxygen saturation decreased [Recovering/Resolving]
  - Back pain [Unknown]
  - Gait inability [Unknown]
  - Tremor [Unknown]
  - Pain [Unknown]
  - Vascular pain [Unknown]
  - Nausea [Unknown]
  - Heart rate increased [Recovering/Resolving]
  - Flushing [Unknown]
  - Fatigue [Recovering/Resolving]
  - Headache [Unknown]
  - Rash [Recovering/Resolving]
